FAERS Safety Report 13310235 (Version 1)
Quarter: 2017Q1

REPORT INFORMATION
  Report Type: Spontaneous
  Country: US (occurrence: US)
  Receive Date: 20170309
  Receipt Date: 20170309
  Transmission Date: 20170428
  Serious: Yes (Life-Threatening, Hospitalization)
  Sender: FDA-Public Use
  Company Number: None

PATIENT
  Age: 64 Year
  Sex: Male
  Weight: 99.79 kg

DRUGS (5)
  1. TAMSULOSIN [Concomitant]
     Active Substance: TAMSULOSIN
  2. QVAR [Suspect]
     Active Substance: BECLOMETHASONE DIPROPIONATE
     Indication: ASTHMA
     Dosage: FREQUENCY - 1 PUFF AT BEDTIME, 1 PUFF MORNING
     Route: 055
     Dates: start: 20160701, end: 20161218
  3. ATORVASTATIN [Concomitant]
     Active Substance: ATORVASTATIN
  4. METFORMIN [Concomitant]
     Active Substance: METFORMIN HYDROCHLORIDE
  5. CALCIUM [Concomitant]
     Active Substance: CALCIUM

REACTIONS (10)
  - Blood glucose decreased [None]
  - Oropharyngeal pain [None]
  - Feeling abnormal [None]
  - Cyst [None]
  - Photophobia [None]
  - Fatigue [None]
  - Heart rate increased [None]
  - Dizziness [None]
  - Headache [None]
  - Abdominal pain [None]

NARRATIVE: CASE EVENT DATE: 20161212
